FAERS Safety Report 23421283 (Version 1)
Quarter: 2024Q1

REPORT INFORMATION
  Report Type: Spontaneous
  Country: US (occurrence: US)
  Receive Date: 20240119
  Receipt Date: 20240119
  Transmission Date: 20240410
  Serious: No
  Sender: FDA-Public Use
  Company Number: US-HIKMA PHARMACEUTICALS USA INC.-US-H14001-23-00770

PATIENT
  Age: 90 Year
  Sex: Male

DRUGS (1)
  1. BALSALAZIDE [Suspect]
     Active Substance: BALSALAZIDE
     Indication: Product used for unknown indication
     Dosage: 6 DOSAGE FORM  |  UNIT DOSE UNIT : DOSAGE FORMS
     Route: 048

REACTIONS (3)
  - Ageusia [Unknown]
  - Product residue present [Unknown]
  - Product use complaint [Unknown]
